FAERS Safety Report 6525944-6 (Version None)
Quarter: 2010Q1

REPORT INFORMATION
  Report Type: 
  Country: None (occurrence: None)
  Receive Date: 20100104
  Receipt Date: 20091221
  Transmission Date: 20100710
  Serious: Yes (Hospitalization)
  Sender: FDA-Public Use
  Company Number: US-CELGENEUS-163-20785-09121861

PATIENT
  Sex: Female

DRUGS (2)
  1. THALOMID [Suspect]
     Indication: MULTIPLE MYELOMA
     Route: 048
     Dates: start: 20091101
  2. THALOMID [Suspect]
     Dosage: 100-400 MG
     Route: 048
     Dates: start: 20070101, end: 20090101

REACTIONS (3)
  - PNEUMONIA [None]
  - RENAL DISORDER [None]
  - THROMBOSIS [None]
